FAERS Safety Report 20741265 (Version 3)
Quarter: 2022Q2

REPORT INFORMATION
  Report Type: Spontaneous
  Country: FR (occurrence: FR)
  Receive Date: 20220422
  Receipt Date: 20220503
  Transmission Date: 20220720
  Serious: Yes (Other)
  Sender: FDA-Public Use
  Company Number: FR-PFIZER INC-202200594987

PATIENT
  Age: 91 Year
  Sex: Female

DRUGS (2)
  1. PAXLOVID [Suspect]
     Active Substance: NIRMATRELVIR\RITONAVIR
     Indication: COVID-19 treatment
     Dosage: [PF-07321332 150MG] / [RITONAVIR 100MG] 2X/DAY  CRUSHED TABLET
     Route: 048
     Dates: start: 20220416, end: 20220421
  2. FLUINDIONE [Concomitant]
     Active Substance: FLUINDIONE
     Dosage: USUAL TREATMENT

REACTIONS (10)
  - Renal failure [Unknown]
  - Renal function test abnormal [Unknown]
  - Dehydration [Unknown]
  - Micturition frequency decreased [Unknown]
  - Ecchymosis [Not Recovered/Not Resolved]
  - Haematoma [Not Recovered/Not Resolved]
  - Intentional product misuse [Unknown]
  - Wrong technique in product usage process [Unknown]
  - Product use complaint [Unknown]
  - Product size issue [Unknown]

NARRATIVE: CASE EVENT DATE: 20220416
